FAERS Safety Report 10227429 (Version 1)
Quarter: 2014Q2

REPORT INFORMATION
  Report Type: Spontaneous
  Country: US (occurrence: None)
  Receive Date: 20140609
  Receipt Date: 20140609
  Transmission Date: 20141212
  Serious: No
  Sender: FDA-Public Use
  Company Number: None

PATIENT
  Age: 3 Year
  Sex: Female
  Weight: 21.2 kg

DRUGS (1)
  1. AMOXICILLIN 250/5ML [Suspect]
     Indication: OTITIS MEDIA
     Route: 048
     Dates: start: 20140602, end: 20140605

REACTIONS (1)
  - Rash [None]
